FAERS Safety Report 6519466-6 (Version None)
Quarter: 2009Q4

REPORT INFORMATION
  Report Type: 
  Country: None (occurrence: None)
  Receive Date: 20091228
  Receipt Date: 20091216
  Transmission Date: 20100525
  Serious: Yes (Other)
  Sender: FDA-Public Use
  Company Number: US-MYLANLABS-2009S1019625

PATIENT
  Age: 42 Year
  Sex: Female
  Weight: 85.28 kg

DRUGS (10)
  1. LEVOTHYROXINE SODIUM [Suspect]
     Indication: THYROID CANCER
     Route: 048
     Dates: start: 20070125, end: 20090731
  2. LEVOTHYROXINE SODIUM [Suspect]
     Indication: HYPOTHYROIDISM
     Route: 048
     Dates: start: 20070125, end: 20090731
  3. COZAAR [Concomitant]
     Indication: BLOOD PRESSURE INCREASED
     Route: 048
     Dates: start: 20060101
  4. ADVAIR DISKUS 100/50 [Concomitant]
     Indication: ASTHMA
     Dosage: 250/50
     Route: 055
     Dates: start: 20060101
  5. DEPAKOTE ER [Concomitant]
     Indication: MIGRAINE
     Route: 048
  6. IBUPROFEN [Concomitant]
  7. DEPO-PROVERA [Concomitant]
  8. IMITREX [Concomitant]
  9. NASACORT [Concomitant]
  10. CELEXA [Concomitant]
     Dosage: DISPENSED TWICE, 11/11/2007 AND 05/31/2008

REACTIONS (4)
  - ALOPECIA [None]
  - DRUG INEFFECTIVE [None]
  - FATIGUE [None]
  - THYROID FUNCTION TEST ABNORMAL [None]
